FAERS Safety Report 7305633-0 (Version None)
Quarter: 2011Q1

REPORT INFORMATION
  Report Type: 
  Country: None (occurrence: None)
  Receive Date: 20110209
  Receipt Date: 20110126
  Transmission Date: 20110831
  Serious: Yes (Other)
  Sender: FDA-Public Use
  Company Number: JP-20110003

PATIENT
  Age: 74 Year
  Sex: Female

DRUGS (1)
  1. (LIPIODOL ULTRA FLUIIDE) (ETHIODIZED OIL) [Suspect]
     Indication: THERAPEUTIC EMBOLISATION
     Dosage: INTRA-ARTERIAL
     Route: 013
     Dates: start: 20091215, end: 20091215

REACTIONS (1)
  - PULMONARY HAEMORRHAGE [None]
